FAERS Safety Report 6259895-1 (Version None)
Quarter: 2009Q3

REPORT INFORMATION
  Report Type: 
  Country: None (occurrence: None)
  Receive Date: 20090708
  Receipt Date: 20090626
  Transmission Date: 20100115
  Serious: Yes (Other)
  Sender: FDA-Public Use
  Company Number: PHHY2009BR26181

PATIENT
  Age: 71 Year
  Sex: Female
  Weight: 56 kg

DRUGS (4)
  1. DIOVAN [Suspect]
     Indication: HYPERTENSION
     Dosage: 1 TABLET (80 MG) PER DAY
     Route: 048
     Dates: start: 20070501, end: 20090601
  2. DIOVAN [Suspect]
     Dosage: 80 MG
     Dates: start: 20090601
  3. CARDIZEM [Concomitant]
     Indication: HYPERTENSION
     Dosage: 20 MG, UNK
     Dates: start: 19910101
  4. CARDIZEM [Concomitant]
     Dosage: 2 TABLETS (20 MG) PER DAY
     Dates: start: 20090601

REACTIONS (2)
  - ANGIOPLASTY [None]
  - ARTERIAL REPAIR [None]
